FAERS Safety Report 8306804-7 (Version None)
Quarter: 2012Q2

REPORT INFORMATION
  Report Type: 
  Country: None (occurrence: None)
  Receive Date: 20120424
  Receipt Date: 20120424
  Transmission Date: 20120825
  Serious: No
  Sender: FDA-Public Use
  Company Number: US-PFIZER INC-2012097378

PATIENT
  Sex: Male

DRUGS (3)
  1. TIKOSYN [Interacting]
     Dosage: UNK
  2. ROBITUSSIN PEAK COLD MULTI-SYMPTOM COLD [Suspect]
     Dosage: UNK
  3. WARFARIN SODIUM [Interacting]
     Dosage: UNK

REACTIONS (3)
  - DRUG INTERACTION [None]
  - ARRHYTHMIA [None]
  - NERVOUSNESS [None]
